FAERS Safety Report 5451692-X (Version None)
Quarter: 2007Q3

REPORT INFORMATION
  Report Type: 
  Country: None (occurrence: None)
  Receive Date: 20070913
  Receipt Date: 20070906
  Transmission Date: 20080115
  Serious: Yes (Congenital Anomaly)
  Sender: FDA-Public Use
  Company Number: US-PFIZER INC-2007049758

PATIENT
  Sex: Female
  Weight: 2.3 kg

DRUGS (3)
  1. VIRACEPT [Suspect]
     Dosage: DAILY DOSE:2500MG
     Route: 048
  2. COMBIVIR [Suspect]
     Route: 048
     Dates: start: 20061219
  3. SULFAMETHOXAZOLE W/TRIMETHOPRIM [Concomitant]

REACTIONS (2)
  - DRUG EXPOSURE DURING PREGNANCY [None]
  - VENTRICULAR SEPTAL DEFECT [None]
